FAERS Safety Report 19035494 (Version 1)
Quarter: 2021Q1

REPORT INFORMATION
  Report Type: Report from Study
  Country: MX (occurrence: MX)
  Receive Date: 20210320
  Receipt Date: 20210320
  Transmission Date: 20210420
  Serious: Yes (Other)
  Sender: FDA-Public Use
  Company Number: NVSC2021MX058856

PATIENT
  Sex: Male
  Weight: 79 kg

DRUGS (1)
  1. EXFORGE [Suspect]
     Active Substance: AMLODIPINE BESYLATE\VALSARTAN
     Indication: HYPERTENSION
     Dosage: 1 DF, QD (STARTED 7 YEARS AGO)
     Route: 048

REACTIONS (2)
  - Hernia [Unknown]
  - Limb discomfort [Unknown]
